FAERS Safety Report 17962470 (Version 3)
Quarter: 2020Q4

REPORT INFORMATION
  Report Type: Report from Study
  Country: US (occurrence: US)
  Receive Date: 20200630
  Receipt Date: 20201023
  Transmission Date: 20210113
  Serious: No
  Sender: FDA-Public Use
  Company Number: US-SA-2020SA164466

PATIENT

DRUGS (3)
  1. DUPILUMAB [Suspect]
     Active Substance: DUPILUMAB
     Indication: DERMATITIS ATOPIC
     Dosage: 600 MG, 1X
     Route: 058
     Dates: start: 202005, end: 202005
  2. DUPILUMAB [Suspect]
     Active Substance: DUPILUMAB
     Dosage: 300 MG, QOW
     Route: 058
     Dates: start: 2020
  3. DUPILUMAB [Suspect]
     Active Substance: DUPILUMAB
     Dosage: 600 MG, 1X
     Route: 058
     Dates: start: 20200610, end: 20200610

REACTIONS (9)
  - Injection site reaction [Unknown]
  - Therapeutic response shortened [Unknown]
  - Injection site swelling [Unknown]
  - Extra dose administered [Unknown]
  - Product storage error [Unknown]
  - Injection site irritation [Unknown]
  - Injection site erythema [Unknown]
  - Eczema [Unknown]
  - Injection site oedema [Unknown]

NARRATIVE: CASE EVENT DATE: 2020
